FAERS Safety Report 15876949 (Version 1)
Quarter: 2019Q1

REPORT INFORMATION
  Report Type: Report from Study
  Country: GR (occurrence: GR)
  Receive Date: 20190128
  Receipt Date: 20190128
  Transmission Date: 20190417
  Serious: Yes (Hospitalization, Other)
  Sender: FDA-Public Use
  Company Number: GR-CONCORDIA PHARMACEUTICALS INC.-GSH201901-000160

PATIENT
  Sex: Male

DRUGS (9)
  1. SALOSPIR [Concomitant]
     Active Substance: ASPIRIN
     Dates: start: 2013
  2. ALFUZOSIN [Suspect]
     Active Substance: ALFUZOSIN
     Indication: BENIGN PROSTATIC HYPERPLASIA
     Route: 048
  3. TRAJENTA [Concomitant]
     Active Substance: LINAGLIPTIN
  4. FUROSEMIDE. [Suspect]
     Active Substance: FUROSEMIDE
     Indication: RENAL FAILURE
     Route: 048
  5. PHYSIOTENS [Concomitant]
     Active Substance: MOXONIDINE
  6. LECALCIF [Concomitant]
     Active Substance: CHOLECALCIFEROL
  7. PROHYPE [Concomitant]
  8. FUROSEMIDE. [Suspect]
     Active Substance: FUROSEMIDE
     Indication: PULMONARY OEDEMA
  9. FINAR [Concomitant]

REACTIONS (5)
  - Blood glucose increased [Unknown]
  - Hemiplegia [Unknown]
  - Stroke volume decreased [Unknown]
  - Renal failure [Unknown]
  - Lung disorder [Unknown]
